FAERS Safety Report 5227284-4 (Version None)
Quarter: 2007Q1

REPORT INFORMATION
  Report Type: 
  Country: None (occurrence: None)
  Receive Date: 20070202
  Receipt Date: 20070201
  Transmission Date: 20070707
  Serious: Yes (Hospitalization)
  Sender: FDA-Public Use
  Company Number: BEWYE064228SEP06

PATIENT

DRUGS (1)
  1. EFFEXOR [Suspect]
     Route: 048

REACTIONS (1)
  - PULMONARY FIBROSIS [None]
